FAERS Safety Report 4761011-X (Version None)
Quarter: 2005Q3

REPORT INFORMATION
  Report Type: 
  Country: None (occurrence: None)
  Receive Date: 20050901
  Receipt Date: 20050831
  Transmission Date: 20060218
  Serious: No
  Sender: FDA-Public Use
  Company Number: VIS10193.2005

PATIENT
  Age: 69 Year
  Sex: Male

DRUGS (5)
  1. VISICOL [Suspect]
     Indication: COLONOSCOPY
     Dosage: 30 MG ONCE PO
     Route: 048
  2. LIPITOR [Concomitant]
  3. TOPROL-XL [Concomitant]
  4. DIPRIDAMOLE [Concomitant]
  5. ASPIRIN [Concomitant]

REACTIONS (5)
  - ANAL FISSURE [None]
  - DYSPHAGIA [None]
  - FOREIGN BODY TRAUMA [None]
  - OESOPHAGEAL STENOSIS [None]
  - OESOPHAGITIS [None]
